FAERS Safety Report 17921928 (Version 1)
Quarter: 2020Q2

REPORT INFORMATION
  Report Type: Spontaneous
  Country: US (occurrence: US)
  Receive Date: 20200619
  Receipt Date: 20200619
  Transmission Date: 20200714
  Serious: Yes (Death)
  Sender: FDA-Public Use
  Company Number: None

PATIENT
  Age: 91 Year
  Sex: Male

DRUGS (1)
  1. VELTASSA [Suspect]
     Active Substance: PATIROMER
     Dosage: ?          OTHER FREQUENCY:THREE TIMES WEEKLY;?
     Route: 048
     Dates: start: 20191016, end: 20200613

REACTIONS (1)
  - Death [None]

NARRATIVE: CASE EVENT DATE: 20200613
